FAERS Safety Report 6212688-3 (Version None)
Quarter: 2009Q2

REPORT INFORMATION
  Report Type: 
  Country: None (occurrence: None)
  Receive Date: 20090603
  Receipt Date: 20090528
  Transmission Date: 20091009
  Serious: Yes (Life-Threatening)
  Sender: FDA-Public Use
  Company Number: GB-ROCHE-635404

PATIENT
  Age: 32 Year
  Sex: Female

DRUGS (5)
  1. XELODA [Suspect]
     Indication: BREAST CANCER
     Dosage: DRUG WAS WITHDRAWN
     Route: 048
     Dates: start: 20090317, end: 20090325
  2. CITALOPRAM HYDROBROMIDE [Concomitant]
     Indication: DEPRESSION
     Route: 048
  3. HYDROCORTISONE [Concomitant]
     Route: 048
     Dates: end: 20090325
  4. MORPHINE [Concomitant]
     Indication: PAIN
     Route: 048
  5. NYSTATIN [Concomitant]
     Route: 048
     Dates: end: 20090325

REACTIONS (4)
  - CARDIAC ARREST [None]
  - SYNCOPE [None]
  - TORSADE DE POINTES [None]
  - VENTRICULAR FIBRILLATION [None]
